FAERS Safety Report 8318208-1 (Version None)
Quarter: 2012Q2

REPORT INFORMATION
  Report Type: 
  Country: None (occurrence: None)
  Receive Date: 20120427
  Receipt Date: 20120420
  Transmission Date: 20120825
  Serious: Yes (Hospitalization)
  Sender: FDA-Public Use
  Company Number: BE-UCBSA-055950

PATIENT
  Age: 50 Year
  Sex: Female
  Weight: 90 kg

DRUGS (20)
  1. ESTIVAN [Concomitant]
  2. PLAQUENIL [Concomitant]
  3. MICONAZOLE [Concomitant]
  4. PANTOPRAZOLE [Concomitant]
  5. CLONAZEPAM [Concomitant]
  6. LORMETAZEPAM [Concomitant]
  7. OXYCODONE HCL [Concomitant]
  8. VIMPAT [Suspect]
     Indication: PARTIAL SEIZURES
     Route: 048
     Dates: start: 20110205
  9. VALPROIC ACID [Concomitant]
  10. CHOLEMED [Concomitant]
  11. D-CURE [Concomitant]
  12. CALCIUM CARBONATE [Concomitant]
  13. BETAHISTINE [Concomitant]
  14. LYRICA [Concomitant]
  15. BETNALAN [Concomitant]
  16. LITICAN [Concomitant]
  17. DURAGESIC-100 [Concomitant]
     Dosage: 50 PATCH
  18. LEVOTHYROXINE SODIUM [Concomitant]
  19. NOVOLIZER BUDESONIDE [Concomitant]
     Dosage: 1 PUFF
  20. MARCUMAR [Concomitant]

REACTIONS (3)
  - INTERNATIONAL NORMALISED RATIO DECREASED [None]
  - CONVULSION [None]
  - DRUG LEVEL DECREASED [None]
